FAERS Safety Report 9701934 (Version 2)
Quarter: 2013Q4

REPORT INFORMATION
  Report Type: Spontaneous
  Country: PT (occurrence: PT)
  Receive Date: 20131121
  Receipt Date: 20131121
  Transmission Date: 20140711
  Serious: Yes (Death, Other)
  Sender: FDA-Public Use
  Company Number: PT-BRISTOL-MYERS SQUIBB COMPANY-18990002

PATIENT
  Age: 66 Year
  Sex: Male
  Weight: 100 kg

DRUGS (1)
  1. IPILIMUMAB [Suspect]
     Indication: MALIGNANT MELANOMA
     Dosage: THERAPY DATES: 17APR,8MAY,29MAY TOTAL DOSE: 300MG
     Dates: start: 20130327, end: 20130529

REACTIONS (4)
  - Death [Fatal]
  - Muscular weakness [Unknown]
  - Pericardial effusion [Unknown]
  - Ascites [Unknown]
